FAERS Safety Report 7450060-9 (Version None)
Quarter: 2011Q2

REPORT INFORMATION
  Report Type: 
  Country: None (occurrence: None)
  Receive Date: 20110502
  Receipt Date: 20110427
  Transmission Date: 20111010
  Serious: Yes (Other)
  Sender: FDA-Public Use
  Company Number: US-AMGEN-USASP2011019944

PATIENT
  Age: 11 Year
  Sex: Female
  Weight: 47.7 kg

DRUGS (6)
  1. DOXORUBICIN [Concomitant]
     Indication: UNDIFFERENTIATED SARCOMA
     Dosage: 50 MG, CONTINUING
     Dates: start: 20110407, end: 20110409
  2. ZOFRAN [Concomitant]
     Indication: NAUSEA
     Dosage: 8 MG, PRN
     Dates: start: 20110324
  3. ZOFRAN [Concomitant]
     Indication: VOMITING
  4. IFOSFAMIDE [Concomitant]
     Indication: UNDIFFERENTIATED SARCOMA
     Dosage: 4.2 G, QD
     Dates: start: 20110407, end: 20110410
  5. NEULASTA [Suspect]
     Indication: CHEMOTHERAPY
     Dosage: 6 MG, ONE TIME DOSE
     Route: 058
     Dates: start: 20110411
  6. BACTRIM [Concomitant]
     Indication: PNEUMOCYSTIS JIROVECI PNEUMONIA
     Dosage: 150 MG/M2, BID
     Dates: start: 20110303

REACTIONS (3)
  - PRURITUS [None]
  - URTICARIA [None]
  - RASH ERYTHEMATOUS [None]
